FAERS Safety Report 5383621-1 (Version None)
Quarter: 2007Q3

REPORT INFORMATION
  Report Type: 
  Country: None (occurrence: None)
  Receive Date: 20070706
  Receipt Date: 20070626
  Transmission Date: 20080115
  Serious: Yes (Other)
  Sender: FDA-Public Use
  Company Number: TCI2007A02596

PATIENT
  Age: 60 Year
  Sex: Male

DRUGS (13)
  1. ACTOS [Suspect]
     Indication: TYPE 2 DIABETES MELLITUS
     Dosage: 15 MG (15 MG, 1 IN 1 D) PER ORAL
     Route: 048
     Dates: start: 20070217, end: 20070517
  2. BLOPRESS (CANDESARTAN CILEXETIL) [Concomitant]
  3. GLUFAST (MITIGLINIDE CALCIUM HYDRATE) [Concomitant]
  4. AMARYL [Concomitant]
  5. LIVALO (ITAVASTATIN CALCIUM) [Concomitant]
  6. NORVASC [Concomitant]
  7. PL (CAFFEINE, SALICYLAMIDE, PARACETAMOL, PROMETHAZINE METHYLENE DISALI [Concomitant]
  8. SOLANTAL (TIARAMIDE HYDROCHLORIDE) [Concomitant]
  9. FLOMOX (CEFCAPENE PIVOXIL HYDROCHLORIDE) [Concomitant]
  10. MARZULENE S (LEVOGLUTAMIDE, SODIUM GUALENATE) [Concomitant]
  11. CODEINE PHOSPHATE [Concomitant]
  12. ONON (PRANLUKAST) [Concomitant]
  13. ZYRTEC [Concomitant]

REACTIONS (7)
  - DYSPNOEA [None]
  - GLYCOSYLATED HAEMOGLOBIN INCREASED [None]
  - OEDEMA PERIPHERAL [None]
  - PULMONARY OEDEMA [None]
  - RHINORRHOEA [None]
  - SUPRAVENTRICULAR EXTRASYSTOLES [None]
  - WEIGHT INCREASED [None]
